FAERS Safety Report 5942228-5 (Version None)
Quarter: 2008Q4

REPORT INFORMATION
  Report Type: 
  Country: None (occurrence: None)
  Receive Date: 20081031
  Receipt Date: 20081023
  Transmission Date: 20090506
  Serious: Yes (Other)
  Sender: FDA-Public Use
  Company Number: 2008SP020142

PATIENT
  Age: 42 Year
  Sex: Male

DRUGS (2)
  1. ASMANEX TWISTHALER [Suspect]
     Indication: ASTHMA
     Dosage: 1 DF; QOD; PO
     Route: 048
     Dates: start: 20070101, end: 20080901
  2. ZYRTEC [Concomitant]

REACTIONS (1)
  - CHORIORETINOPATHY [None]
